FAERS Safety Report 9436878 (Version 1)
Quarter: 2013Q3

REPORT INFORMATION
  Report Type: Spontaneous
  Country: FR (occurrence: FR)
  Receive Date: 20130802
  Receipt Date: 20130802
  Transmission Date: 20140515
  Serious: Yes (Disabling)
  Sender: FDA-Public Use
  Company Number: FR-JNJFOC-20130714960

PATIENT
  Age: 37 Year
  Sex: Male

DRUGS (6)
  1. EPITOMAX [Suspect]
     Indication: DRUG DEPENDENCE
     Route: 048
     Dates: start: 20130614
  2. EPITOMAX [Suspect]
     Indication: DRUG DEPENDENCE
     Route: 048
     Dates: start: 20130604
  3. EPITOMAX [Suspect]
     Indication: DRUG DEPENDENCE
     Route: 048
     Dates: start: 20130225, end: 20130603
  4. METHADONE [Concomitant]
     Route: 048
     Dates: start: 20130225
  5. TERCIAN [Concomitant]
     Route: 048
     Dates: start: 20130325
  6. VALIUM [Concomitant]
     Route: 048
     Dates: start: 20130225

REACTIONS (3)
  - Aphasia [Recovered/Resolved]
  - Affective disorder [Recovered/Resolved]
  - Off label use [Unknown]
